FAERS Safety Report 5961353-6 (Version None)
Quarter: 2008Q4

REPORT INFORMATION
  Report Type: 
  Country: None (occurrence: None)
  Receive Date: 20081121
  Receipt Date: 20081117
  Transmission Date: 20090506
  Serious: Yes (Life-Threatening)
  Sender: FDA-Public Use
  Company Number: JP-ASTRAZENECA-2008AP08893

PATIENT
  Age: 54 Year
  Sex: Male
  Weight: 93 kg

DRUGS (6)
  1. DIPRIVAN [Suspect]
     Indication: SEDATION
     Dosage: ADMINISTERED AT 5 ML/H - 30 ML/H.
     Route: 041
     Dates: start: 20080424, end: 20080510
  2. OMEPRAL [Suspect]
     Route: 042
  3. SERENACE [Suspect]
     Dosage: DOSE UNKNOWN
     Route: 065
     Dates: start: 20080424
  4. ZANTAC [Suspect]
     Dosage: DOSE UNKNOWN
     Route: 065
  5. PRIMPERAN [Suspect]
     Dosage: DOSE UNKNOWN
     Route: 065
  6. MIDAZOLAM HCL [Concomitant]
     Dosage: DOSE UNKNOWN
     Route: 042
     Dates: start: 20080424, end: 20080424

REACTIONS (3)
  - BLOOD CREATINE PHOSPHOKINASE INCREASED [None]
  - BLOOD UREA INCREASED [None]
  - PYREXIA [None]
